FAERS Safety Report 8437521-0 (Version None)
Quarter: 2012Q2

REPORT INFORMATION
  Report Type: 
  Country: None (occurrence: None)
  Receive Date: 20120614
  Receipt Date: 20120410
  Transmission Date: 20120825
  Serious: No
  Sender: FDA-Public Use
  Company Number: US-AMGEN-USASP2012022603

PATIENT
  Age: 73 Year
  Sex: Female

DRUGS (7)
  1. LOTREL [Concomitant]
     Dosage: UNK
  2. SIMVASTATIN [Concomitant]
     Dosage: UNK
  3. VITAMIN C                          /00008001/ [Concomitant]
     Dosage: UNK
  4. OCUVITE                            /01053801/ [Concomitant]
     Dosage: UNK
  5. CALCIUM [Concomitant]
     Dosage: UNK
  6. PROLIA [Suspect]
     Indication: OSTEOPOROSIS
     Dosage: 60 MG, Q6MO
     Route: 058
     Dates: start: 20110101
  7. VITAMIN D [Concomitant]
     Dosage: UNK

REACTIONS (1)
  - DERMATITIS [None]
